FAERS Safety Report 7392631-4 (Version None)
Quarter: 2011Q2

REPORT INFORMATION
  Report Type: 
  Country: None (occurrence: None)
  Receive Date: 20110404
  Receipt Date: 20110329
  Transmission Date: 20111010
  Serious: Yes (Other)
  Sender: FDA-Public Use
  Company Number: US-ABBOTT-11P-163-0715155-00

PATIENT
  Sex: Female
  Weight: 68.1 kg

DRUGS (8)
  1. HUMIRA [Suspect]
     Indication: RHEUMATOID ARTHRITIS
     Dates: start: 20100101
  2. GLUTAMINE [Concomitant]
     Indication: RHEUMATOID ARTHRITIS
  3. SELENIUM [Concomitant]
     Indication: MINERAL SUPPLEMENTATION
  4. MULTI-VITAMIN [Concomitant]
     Indication: VITAMIN SUPPLEMENTATION
  5. AMINO ACID INJ [Concomitant]
     Indication: RHEUMATOID ARTHRITIS
  6. ZINC [Concomitant]
     Indication: MINERAL SUPPLEMENTATION
  7. IODINE [Concomitant]
     Indication: THYROID DISORDER
  8. BOSWELLIA [Concomitant]
     Indication: RHEUMATOID ARTHRITIS

REACTIONS (7)
  - PARAESTHESIA [None]
  - INTERVERTEBRAL DISC PROTRUSION [None]
  - HYPOAESTHESIA [None]
  - BACK PAIN [None]
  - SCIATICA [None]
  - HAIR METAL TEST ABNORMAL [None]
  - NERVE COMPRESSION [None]
